FAERS Safety Report 12916417 (Version 1)
Quarter: 2016Q4

REPORT INFORMATION
  Report Type: Spontaneous
  Country: US (occurrence: US)
  Receive Date: 20161107
  Receipt Date: 20161107
  Transmission Date: 20170207
  Serious: No
  Sender: FDA-Public Use
  Company Number: None

PATIENT
  Age: 68 Year
  Sex: Male

DRUGS (4)
  1. ESOMEPRAZOLE MAGNESIUM DELAYED RELEASE CAP [Suspect]
     Active Substance: ESOMEPRAZOLE MAGNESIUM
     Indication: GASTROOESOPHAGEAL REFLUX DISEASE
     Dosage: ESOMEPRAZOLE MAGNESIUM DELAYED RELEASE 40 MG CAP - INDICATION - GERD - PRODUCT WAS GENERIC FOR NEXIUM SUPPLIED BY AARP/UHC MEDICARE RX
     Route: 048
     Dates: start: 20160818, end: 20160820
  2. ESOMEPRAZOLE MAGNESIUM DELAYED RELEASE CAP [Suspect]
     Active Substance: ESOMEPRAZOLE MAGNESIUM
     Indication: DRUG THERAPY
     Dosage: ESOMEPRAZOLE MAGNESIUM DELAYED RELEASE 40 MG CAP - INDICATION - GERD - PRODUCT WAS GENERIC FOR NEXIUM SUPPLIED BY AARP/UHC MEDICARE RX
     Route: 048
     Dates: start: 20160818, end: 20160820
  3. NEXIUM [Concomitant]
     Active Substance: ESOMEPRAZOLE MAGNESIUM
  4. ASPIRIN. [Concomitant]
     Active Substance: ASPIRIN

REACTIONS (3)
  - Product substitution issue [None]
  - Dyspepsia [None]
  - Drug ineffective [None]

NARRATIVE: CASE EVENT DATE: 20160820
